FAERS Safety Report 14315454 (Version 1)
Quarter: 2017Q4

REPORT INFORMATION
  Report Type: Spontaneous
  Country: US (occurrence: US)
  Receive Date: 20171221
  Receipt Date: 20171221
  Transmission Date: 20180321
  Serious: Yes (Life-Threatening, Hospitalization, Other)
  Sender: FDA-Public Use
  Company Number: US-MEDICURE INC.-2037600

PATIENT
  Age: 69 Year
  Sex: Female
  Weight: 72.2 kg

DRUGS (30)
  1. AGGRASTAT [Suspect]
     Active Substance: TIROFIBAN HYDROCHLORIDE
     Route: 041
     Dates: start: 20171203, end: 20171203
  2. ATORVASTATIN CALCIUM. [Concomitant]
     Active Substance: ATORVASTATIN CALCIUM
     Dates: start: 20171203, end: 20171203
  3. NITROSTAT [Concomitant]
     Active Substance: NITROGLYCERIN
     Route: 060
     Dates: start: 20171203, end: 20171203
  4. ADENOSINE. [Concomitant]
     Active Substance: ADENOSINE
  5. PHENERGAN [Concomitant]
     Active Substance: PROMETHAZINE HYDROCHLORIDE
     Dates: start: 20171203, end: 20171203
  6. LEVOPHED [Concomitant]
     Active Substance: NOREPINEPHRINE BITARTRATE
     Route: 042
     Dates: start: 20171203, end: 20171203
  7. MIDAZOLAM [Concomitant]
     Active Substance: MIDAZOLAM HYDROCHLORIDE
     Route: 042
  8. MORPHINE SULFATE. [Concomitant]
     Active Substance: MORPHINE SULFATE
     Route: 042
     Dates: start: 20171203, end: 20171203
  9. VERAPAMIL [Concomitant]
     Active Substance: VERAPAMIL HYDROCHLORIDE
     Route: 042
     Dates: start: 20171204, end: 20171204
  10. FENTANYL. [Concomitant]
     Active Substance: FENTANYL
     Dates: start: 20171204, end: 20171204
  11. AGGRASTAT [Suspect]
     Active Substance: TIROFIBAN HYDROCHLORIDE
     Indication: ANTIPLATELET THERAPY
     Route: 040
     Dates: start: 20171203, end: 20171203
  12. ANGIOMAX [Concomitant]
     Active Substance: BIVALIRUDIN
     Route: 042
     Dates: start: 20171203, end: 20171204
  13. NICARDIPINE HYDROCHLORIDE. [Concomitant]
     Active Substance: NICARDIPINE HYDROCHLORIDE
     Route: 042
  14. MIDAZOLAM [Concomitant]
     Active Substance: MIDAZOLAM HYDROCHLORIDE
     Route: 042
     Dates: start: 20171204, end: 20171204
  15. O-NEGATIVE BLOOD [Concomitant]
     Route: 042
  16. HYDRALAZINE [Concomitant]
     Active Substance: HYDRALAZINE HYDROCHLORIDE
     Dates: start: 20171204, end: 20171204
  17. IV FLUIDS [Concomitant]
     Active Substance: UNSPECIFIED INGREDIENT
     Route: 042
  18. BRILINTA [Concomitant]
     Active Substance: TICAGRELOR
     Route: 048
  19. PEPCID [Concomitant]
     Active Substance: FAMOTIDINE
  20. NITROGLYCERIN. [Concomitant]
     Active Substance: NITROGLYCERIN
     Route: 042
     Dates: start: 20171203, end: 20171203
  21. ALPRAZOLAM. [Concomitant]
     Active Substance: ALPRAZOLAM
  22. MAALOX ANTACID [Concomitant]
     Active Substance: ALUMINUM HYDROXIDE\DIMETHICONE\MAGNESIUM HYDROXIDE
  23. PHENERGAN [Concomitant]
     Active Substance: PROMETHAZINE HYDROCHLORIDE
     Dates: start: 20171203, end: 20171203
  24. CALCIUM IV [Concomitant]
     Route: 042
  25. LIDOCAINE. [Concomitant]
     Active Substance: LIDOCAINE
     Route: 042
     Dates: start: 20171204, end: 20171204
  26. LOPRESSOR [Concomitant]
     Active Substance: METOPROLOL TARTRATE
  27. ZOFRAN [Concomitant]
     Active Substance: ONDANSETRON HYDROCHLORIDE
     Route: 042
     Dates: start: 20171203, end: 20171203
  28. IOPAMIDOL [Concomitant]
     Active Substance: IOPAMIDOL
     Route: 042
  29. HEPARIN [Concomitant]
     Active Substance: HEPARIN SODIUM
     Route: 042
  30. METOPROLOL. [Concomitant]
     Active Substance: METOPROLOL
     Route: 042

REACTIONS (9)
  - Catheter site haematoma [Recovering/Resolving]
  - Cardiac tamponade [Recovered/Resolved]
  - Injection site haematoma [Recovering/Resolving]
  - Disseminated intravascular coagulation [Recovered/Resolved]
  - Pain in jaw [Recovered/Resolved]
  - Infusion site haematoma [Recovering/Resolving]
  - Orthopnoea [Recovered/Resolved]
  - Catheter site haemorrhage [Recovered/Resolved]
  - Coronary artery stenosis [Recovered/Resolved]

NARRATIVE: CASE EVENT DATE: 20171203
